FAERS Safety Report 10044525 (Version 3)
Quarter: 2014Q2

REPORT INFORMATION
  Report Type: Spontaneous
  Country: US (occurrence: US)
  Receive Date: 20140328
  Receipt Date: 20140604
  Transmission Date: 20141212
  Serious: Yes (Other)
  Sender: FDA-Public Use
  Company Number: US-ROXANE LABORATORIES, INC.-2014-RO-00471RO

PATIENT
  Sex: Female
  Weight: 64 kg

DRUGS (2)
  1. EXEMESTANE [Suspect]
     Indication: BREAST CANCER STAGE II
     Dosage: 25 MG
     Route: 048
     Dates: start: 20130506, end: 20140102
  2. SPIRIVA [Concomitant]
     Indication: CHRONIC OBSTRUCTIVE PULMONARY DISEASE
     Route: 065

REACTIONS (10)
  - Drug ineffective [Unknown]
  - Aphasia [Recovered/Resolved]
  - Dyspnoea [Not Recovered/Not Resolved]
  - Cognitive disorder [Not Recovered/Not Resolved]
  - Mental impairment [Not Recovered/Not Resolved]
  - Decreased appetite [Not Recovered/Not Resolved]
  - Dysgraphia [Not Recovered/Not Resolved]
  - Product quality issue [Unknown]
  - Fatigue [Not Recovered/Not Resolved]
  - Asthenia [Not Recovered/Not Resolved]
